FAERS Safety Report 14342906 (Version 5)
Quarter: 2020Q1

REPORT INFORMATION
  Report Type: Spontaneous
  Country: CA (occurrence: CA)
  Receive Date: 20180102
  Receipt Date: 20200121
  Transmission Date: 20200409
  Serious: Yes (Other)
  Sender: FDA-Public Use
  Company Number: CA-PFIZER INC-2009280951

PATIENT
  Age: 54 Year
  Sex: Female

DRUGS (7)
  1. DIAZEPAM. [Suspect]
     Active Substance: DIAZEPAM
     Indication: AKATHISIA
     Dosage: 10 MG H.S.
  2. CLONAZEPAM. [Suspect]
     Active Substance: CLONAZEPAM
     Indication: SOMNAMBULISM
     Dosage: 2 MG, 1X/DAY (HS)
  3. PHENYTOIN. [Suspect]
     Active Substance: PHENYTOIN
     Indication: GENERALISED TONIC-CLONIC SEIZURE
     Dosage: 300 MG, DAILY
  4. QUETIAPINE. [Suspect]
     Active Substance: QUETIAPINE
     Indication: SCHIZOPHRENIA
     Dosage: 900 MG H.S.
     Route: 048
  5. CLONAZEPAM. [Suspect]
     Active Substance: CLONAZEPAM
     Indication: AKATHISIA
     Dosage: 0.5 MG, H.S.
  6. QUETIAPINE. [Suspect]
     Active Substance: QUETIAPINE
     Dosage: 750 MG, DAILY
     Route: 048
  7. SERTRALINE HCL [Suspect]
     Active Substance: SERTRALINE HYDROCHLORIDE
     Indication: DEPRESSION
     Dosage: 150 MG, QAM

REACTIONS (1)
  - Dystonia [Recovered/Resolved]
